FAERS Safety Report 6229121-8 (Version None)
Quarter: 2009Q2

REPORT INFORMATION
  Report Type: 
  Country: None (occurrence: None)
  Receive Date: 20090615
  Receipt Date: 20090612
  Transmission Date: 20091009
  Serious: Yes (Hospitalization)
  Sender: FDA-Public Use
  Company Number: JP-B.I. PHARMACEUTICALS,INC./RIDGEFIELD-2009-BP-05075NB

PATIENT
  Sex: Male
  Weight: 53.3 kg

DRUGS (10)
  1. MICARDIS [Suspect]
     Indication: HYPERTENSION
     Dosage: 40MG
     Route: 048
     Dates: start: 20070326, end: 20090112
  2. REGPARA [Concomitant]
     Dosage: 50MG
     Route: 048
     Dates: start: 20050301
  3. ARTIST [Concomitant]
     Dosage: 1.25MG
     Route: 048
     Dates: start: 20050301
  4. CALTAN [Concomitant]
     Dosage: 3000MG
     Route: 048
     Dates: start: 20050301
  5. WARFARIN SODIUM [Concomitant]
     Dosage: 2.75MG
     Route: 048
     Dates: start: 20050301
  6. STOGAR [Concomitant]
     Dosage: 10MG
     Route: 048
     Dates: start: 20050301
  7. CALFALEAD [Concomitant]
     Dosage: .25MCG
     Route: 048
     Dates: start: 20050301
  8. BASEN [Concomitant]
     Dosage: .9MG
     Route: 048
     Dates: start: 20050301, end: 20090406
  9. EPOGIN INJ [Concomitant]
     Dosage: .5ML
     Route: 042
  10. OXAROL [Concomitant]
     Dosage: 5MCG
     Route: 042

REACTIONS (4)
  - BLOOD PRESSURE DECREASED [None]
  - CARDIAC FAILURE CONGESTIVE [None]
  - PNEUMONIA BACTERIAL [None]
  - PULMONARY OEDEMA [None]
